FAERS Safety Report 16431437 (Version 2)
Quarter: 2019Q3

REPORT INFORMATION
  Report Type: Spontaneous
  Country: US (occurrence: US)
  Receive Date: 20190614
  Receipt Date: 20190830
  Transmission Date: 20191004
  Serious: Yes (Hospitalization)
  Sender: FDA-Public Use
  Company Number: US-INCYTE CORPORATION-2019IN005820

PATIENT

DRUGS (2)
  1. JAKAFI [Suspect]
     Active Substance: RUXOLITINIB
     Indication: MYELOFIBROSIS
     Dosage: 20 MILLIGRAM, BID
     Route: 048
     Dates: start: 201802
  2. JAKAFI [Suspect]
     Active Substance: RUXOLITINIB
     Dosage: 20 MILLIGRAM, BID
     Route: 048
     Dates: start: 201802

REACTIONS (8)
  - Ill-defined disorder [Unknown]
  - Abdominal pain [Unknown]
  - Anorectal discomfort [Unknown]
  - Computerised tomogram abnormal [Unknown]
  - Emotional disorder [Unknown]
  - Proctalgia [Unknown]
  - Infection [Unknown]
  - Pain [Unknown]
